FAERS Safety Report 7632393-6 (Version None)
Quarter: 2011Q3

REPORT INFORMATION
  Report Type: 
  Country: None (occurrence: None)
  Receive Date: 20110725
  Receipt Date: 20100823
  Transmission Date: 20111222
  Serious: Yes (Other)
  Sender: FDA-Public Use
  Company Number: US-BRISTOL-MYERS SQUIBB COMPANY-15250392

PATIENT
  Age: 72 Year
  Sex: Male
  Weight: 66 kg

DRUGS (6)
  1. POLYETHYLENE GLYCOL [Concomitant]
  2. COZAAR [Concomitant]
  3. TOPROL-XL [Concomitant]
  4. COUMADIN [Suspect]
  5. PRILOSEC [Concomitant]
  6. DARVON [Concomitant]

REACTIONS (1)
  - INTERNATIONAL NORMALISED RATIO DECREASED [None]
